FAERS Safety Report 8308488-0 (Version None)
Quarter: 2012Q2

REPORT INFORMATION
  Report Type: 
  Country: None (occurrence: None)
  Receive Date: 20120424
  Receipt Date: 20120417
  Transmission Date: 20120825
  Serious: Yes (Life-Threatening)
  Sender: FDA-Public Use
  Company Number: AT-PURDUE-DEU-2012-0008827

PATIENT
  Age: 19 Year
  Sex: Male

DRUGS (1)
  1. MORPHINE [Suspect]
     Indication: DRUG ABUSE

REACTIONS (5)
  - DRUG ABUSE [None]
  - DRUG DIVERSION [None]
  - OVERDOSE [None]
  - APALLIC SYNDROME [None]
  - BRAIN OEDEMA [None]
